FAERS Safety Report 9425324 (Version 1)
Quarter: 2013Q3

REPORT INFORMATION
  Report Type: Spontaneous
  Country: GB (occurrence: GB)
  Receive Date: 20130729
  Receipt Date: 20130729
  Transmission Date: 20140515
  Serious: Yes (Other)
  Sender: FDA-Public Use
  Company Number: GB-TEVA-420239ISR

PATIENT
  Age: 72 Year
  Sex: Male

DRUGS (7)
  1. MIRTAZAPINE [Suspect]
     Route: 048
     Dates: start: 20130620
  2. RAMIPRIL [Concomitant]
  3. BISOPROLOL [Concomitant]
  4. LANSOPRAZOLE [Concomitant]
  5. PRAVASTATIN [Concomitant]
  6. WARFARIN [Concomitant]
  7. PARACETAMOL [Concomitant]

REACTIONS (5)
  - Stomatitis [Unknown]
  - Oral mucosal blistering [Unknown]
  - Cough [Unknown]
  - Oropharyngeal pain [Unknown]
  - Oedema mouth [Unknown]
